FAERS Safety Report 25597197 (Version 1)
Quarter: 2025Q3

REPORT INFORMATION
  Report Type: Spontaneous
  Country: JP (occurrence: JP)
  Receive Date: 20250723
  Receipt Date: 20250723
  Transmission Date: 20251020
  Serious: Yes (Hospitalization, Other)
  Sender: JOHNSON AND JOHNSON
  Company Number: JP-JNJFOC-20250726418

PATIENT
  Age: 2 Year
  Sex: Male
  Weight: 5.56 kg

DRUGS (7)
  1. UPTRAVI [Suspect]
     Active Substance: SELEXIPAG
     Indication: Pulmonary hypertension
     Route: 048
  2. UPTRAVI [Suspect]
     Active Substance: SELEXIPAG
     Route: 048
  3. ADCIRCA [Suspect]
     Active Substance: TADALAFIL
     Indication: Pulmonary hypertension
     Route: 048
  4. ADCIRCA [Suspect]
     Active Substance: TADALAFIL
     Route: 048
  5. FUROSEMIDE [Concomitant]
     Active Substance: FUROSEMIDE
     Indication: Product used for unknown indication
     Route: 065
  6. DIMETHICONE [Concomitant]
     Active Substance: DIMETHICONE
     Indication: Product used for unknown indication
     Route: 048
  7. LEVETIRACETAM [Concomitant]
     Active Substance: LEVETIRACETAM
     Indication: Product used for unknown indication
     Route: 065

REACTIONS (9)
  - Hypoxia [Recovering/Resolving]
  - Bronchitis viral [Unknown]
  - Tracheal haemorrhage [Unknown]
  - Pulmonary hypertension [Unknown]
  - Pulmonary hypertensive crisis [Unknown]
  - Haemoptysis [Unknown]
  - Cough [Unknown]
  - Increased bronchial secretion [Unknown]
  - Excessive granulation tissue [Unknown]
